FAERS Safety Report 13341697 (Version 1)
Quarter: 2017Q1

REPORT INFORMATION
  Report Type: Spontaneous
  Country: US (occurrence: US)
  Receive Date: 20170316
  Receipt Date: 20170316
  Transmission Date: 20170428
  Serious: No
  Sender: FDA-Public Use
  Company Number: US-ROCHE-1768229

PATIENT
  Age: 34 Year

DRUGS (1)
  1. VISMODEGIB [Suspect]
     Active Substance: VISMODEGIB
     Indication: BASAL CELL CARCINOMA
     Route: 065
     Dates: start: 2011

REACTIONS (5)
  - Dysgeusia [Unknown]
  - Alopecia [Unknown]
  - Amenorrhoea [Recovered/Resolved]
  - Muscle spasms [Unknown]
  - Asthenia [Unknown]
